FAERS Safety Report 4606145-5 (Version None)
Quarter: 2005Q1

REPORT INFORMATION
  Report Type: 
  Country: None (occurrence: None)
  Receive Date: 20050309
  Receipt Date: 20050228
  Transmission Date: 20050727
  Serious: Yes (Hospitalization)
  Sender: FDA-Public Use
  Company Number: TPA2005A00174

PATIENT
  Age: 62 Year
  Sex: Female
  Weight: 88.905 kg

DRUGS (12)
  1. ACTOS [Suspect]
     Indication: DIABETES MELLITUS NON-INSULIN-DEPENDENT
     Dosage: 1 IN 1 D, PER ORAL; 45 MG, 1 IN 1 D, PER ORAL; 30 MG, 1 IN 1 D, PER ORAL
     Route: 048
     Dates: start: 20010202, end: 20010323
  2. ACTOS [Suspect]
     Indication: DIABETES MELLITUS NON-INSULIN-DEPENDENT
     Dosage: 1 IN 1 D, PER ORAL; 45 MG, 1 IN 1 D, PER ORAL; 30 MG, 1 IN 1 D, PER ORAL
     Route: 048
     Dates: start: 20010323, end: 20031024
  3. ACTOS [Suspect]
     Indication: DIABETES MELLITUS NON-INSULIN-DEPENDENT
     Dosage: 1 IN 1 D, PER ORAL; 45 MG, 1 IN 1 D, PER ORAL; 30 MG, 1 IN 1 D, PER ORAL
     Route: 048
     Dates: start: 20031024, end: 20040224
  4. ACTOS [Suspect]
     Indication: DIABETES MELLITUS NON-INSULIN-DEPENDENT
     Dosage: 1 IN 1 D, PER ORAL; 45 MG, 1 IN 1 D, PER ORAL; 30 MG, 1 IN 1 D, PER ORAL
     Route: 048
     Dates: start: 20040224
  5. GLUCOVANCE [Suspect]
     Indication: DIABETES MELLITUS
     Dosage: 5/500 MG, 4 IN 1 D, PER ORAL
     Route: 048
     Dates: start: 20000101
  6. LISINOPRIL [Concomitant]
  7. EFFEXOR XR [Concomitant]
  8. IRON (IRON) [Concomitant]
  9. ATIVAN [Concomitant]
  10. MOBIC [Concomitant]
  11. PREMARIN [Concomitant]
  12. LIPITOR [Concomitant]

REACTIONS (17)
  - ABDOMINAL PAIN [None]
  - ANXIETY [None]
  - ASTHENIA [None]
  - BACK PAIN [None]
  - BLOOD GLUCOSE DECREASED [None]
  - BLOOD POTASSIUM DECREASED [None]
  - BLOOD TRIGLYCERIDES INCREASED [None]
  - BRONCHITIS [None]
  - DYSPNOEA [None]
  - FEELING ABNORMAL [None]
  - MENOPAUSAL SYMPTOMS [None]
  - OEDEMA [None]
  - PALPITATIONS [None]
  - RASH PRURITIC [None]
  - SINUSITIS [None]
  - TACHYCARDIA [None]
  - VERTIGO [None]
